FAERS Safety Report 7483844-1 (Version None)
Quarter: 2011Q2

REPORT INFORMATION
  Report Type: 
  Country: None (occurrence: None)
  Receive Date: 20110517
  Receipt Date: 20110510
  Transmission Date: 20111010
  Serious: Yes (Hospitalization)
  Sender: FDA-Public Use
  Company Number: PHHY2011US40460

PATIENT
  Sex: Male
  Weight: 91.61 kg

DRUGS (1)
  1. EXJADE [Suspect]
     Indication: NEOPLASM
     Dosage: 1875 MG, QD
     Route: 048
     Dates: start: 20100827

REACTIONS (2)
  - WHITE BLOOD CELL COUNT INCREASED [None]
  - LEUKAEMIA [None]
